FAERS Safety Report 23788470 (Version 2)
Quarter: 2024Q2

REPORT INFORMATION
  Report Type: Spontaneous
  Country: DE (occurrence: DE)
  Receive Date: 20240426
  Receipt Date: 20240426
  Transmission Date: 20240716
  Serious: Yes (Hospitalization, Other)
  Sender: FDA-Public Use
  Company Number: DE-FreseniusKabi-FK202406493

PATIENT
  Age: 71 Year
  Sex: Male

DRUGS (5)
  1. IDACIO [Suspect]
     Active Substance: ADALIMUMAB-AACF
     Indication: Rheumatoid arthritis
     Dosage: -DOSE AND FREQUENCY: NOT REPORTED?-ROUTE OF ADMIN: NOT REPORTED?-NEXT IDACIO INJECTIONS IN OCT-NOV-D
     Dates: start: 20230601
  2. PREDNISOLONE [Concomitant]
     Active Substance: PREDNISOLONE
     Indication: Product used for unknown indication
     Dosage: FOA: TABLET?1-0-0
  3. METAMIZOLE [Concomitant]
     Active Substance: METAMIZOLE
     Indication: Product used for unknown indication
     Dosage: FOA: DROP SOLUTION?DOSE: 500MG
  4. Panto AIWA [Concomitant]
     Indication: Product used for unknown indication
     Dosage: FOA: GASTRORESISTANT TABLET?(1-0-0)?DOSE: 20MG
  5. GLUCOPHAGE [Concomitant]
     Active Substance: METFORMIN HYDROCHLORIDE
     Indication: Product used for unknown indication
     Dosage: FOA: FILM TABLET

REACTIONS (4)
  - Pneumonia [Recovered/Resolved]
  - Oesophageal adenocarcinoma [Recovering/Resolving]
  - Metastases to liver [Recovering/Resolving]
  - Renal cyst [Recovering/Resolving]

NARRATIVE: CASE EVENT DATE: 20230913
